FAERS Safety Report 17689081 (Version 1)
Quarter: 2020Q2

REPORT INFORMATION
  Report Type: Spontaneous
  Country: US (occurrence: US)
  Receive Date: 20200421
  Receipt Date: 20200421
  Transmission Date: 20200714
  Serious: Yes (Other)
  Sender: FDA-Public Use
  Company Number: US-CADILA HEALTHCARE LIMITED-US-ZYDUS-046166

PATIENT

DRUGS (1)
  1. BOSENTAN 62.5 MG TABLETS [Suspect]
     Active Substance: BOSENTAN
     Indication: PRODUCT USED FOR UNKNOWN INDICATION
     Dosage: FREQUENCY :UNK
     Route: 065

REACTIONS (3)
  - Cardiac operation [Unknown]
  - Surgery [Unknown]
  - Nasopharyngitis [Unknown]
